FAERS Safety Report 18089203 (Version 1)
Quarter: 2020Q3

REPORT INFORMATION
  Report Type: Spontaneous
  Country: JP (occurrence: JP)
  Receive Date: 20200729
  Receipt Date: 20200729
  Transmission Date: 20201103
  Serious: Yes (Other)
  Sender: FDA-Public Use
  Company Number: JP-SYNEX-T202003737

PATIENT
  Age: 10 Day
  Sex: Male
  Weight: 4 kg

DRUGS (3)
  1. OXYGEN. [Concomitant]
     Active Substance: OXYGEN
     Indication: HYPOXIA
     Dosage: UNK
     Route: 065
  2. INOFLO [Suspect]
     Active Substance: NITRIC OXIDE
     Indication: PULMONARY HYPERTENSION
     Dosage: UNK (INHALATION)
     Route: 055
  3. SURFACTANT BL [Concomitant]
     Indication: HYPOXIA
     Dosage: 240 MILLIGRAM
     Route: 065

REACTIONS (3)
  - Atelectasis neonatal [Recovering/Resolving]
  - Pneumothorax [Recovering/Resolving]
  - Pulmonary interstitial emphysema syndrome [Recovering/Resolving]
